FAERS Safety Report 8802821 (Version 6)
Quarter: 2013Q3

REPORT INFORMATION
  Report Type: Spontaneous
  Country: US (occurrence: US)
  Receive Date: 20120921
  Receipt Date: 20130905
  Transmission Date: 20140515
  Serious: Yes (Hospitalization, Other)
  Sender: FDA-Public Use
  Company Number: US-009507513-1209USA004690

PATIENT
  Sex: Female

DRUGS (6)
  1. FOSAMAX [Suspect]
     Indication: OSTEOPOROSIS
     Dosage: 10 MG, QD
     Route: 048
     Dates: start: 20000417, end: 200110
  2. FOSAMAX [Suspect]
     Dosage: 70 MG, QW
     Route: 048
     Dates: start: 200110, end: 200708
  3. FOSAMAX PLUS D [Suspect]
     Indication: OSTEOPOROSIS
     Dosage: 70 MG, QW
     Route: 048
     Dates: start: 200708, end: 20080904
  4. ALENDRONATE SODIUM [Suspect]
     Dosage: 70 MG, QW
     Route: 048
  5. ALLEGRA [Concomitant]
     Indication: SEASONAL ALLERGY
     Dosage: UNK
     Dates: start: 2000
  6. VALTREX [Concomitant]
     Indication: HERPES VIRUS INFECTION
     Dosage: UNK
     Dates: start: 1985

REACTIONS (21)
  - Hysterectomy [Unknown]
  - Surgical procedure repeated [Unknown]
  - Bladder operation [Unknown]
  - Surgical procedure repeated [Unknown]
  - Femur fracture [Recovered/Resolved]
  - Hypertension [Unknown]
  - Adverse event [Unknown]
  - Bunion operation [Unknown]
  - Rib fracture [Unknown]
  - Osteopenia [Unknown]
  - Rotator cuff syndrome [Unknown]
  - Bursitis [Unknown]
  - Bursitis [Unknown]
  - Tendonitis [Unknown]
  - Rib fracture [Unknown]
  - Osteoarthritis [Unknown]
  - Restless legs syndrome [Unknown]
  - Breast lump removal [Unknown]
  - Tonsillectomy [Unknown]
  - Adenoidectomy [Unknown]
  - Drug ineffective [Unknown]
